FAERS Safety Report 21308299 (Version 5)
Quarter: 2022Q4

REPORT INFORMATION
  Report Type: Report from Study
  Country: US (occurrence: US)
  Receive Date: 20220908
  Receipt Date: 20221128
  Transmission Date: 20230113
  Serious: Yes (Death, Hospitalization)
  Sender: FDA-Public Use
  Company Number: US-JNJFOC-20220912060

PATIENT
  Age: 80 Year
  Sex: Female
  Weight: 104.5 kg

DRUGS (8)
  1. SELEXIPAG [Suspect]
     Active Substance: SELEXIPAG
     Indication: Pulmonary hypertension
     Dosage: UPTRAVI 200MCG ORALLY 2 TIMES DAILY
     Route: 048
  2. SELEXIPAG [Suspect]
     Active Substance: SELEXIPAG
     Route: 048
  3. OFEV [Concomitant]
     Active Substance: NINTEDANIB
  4. SILDENAFIL CITRATE [Concomitant]
     Active Substance: SILDENAFIL CITRATE
  5. NIFEDIPINE [Concomitant]
     Active Substance: NIFEDIPINE
  6. AMLODIPINE [Concomitant]
     Active Substance: AMLODIPINE BESYLATE
  7. AMBRISENTAN [Concomitant]
     Active Substance: AMBRISENTAN
  8. REVATIO [Concomitant]
     Active Substance: SILDENAFIL CITRATE

REACTIONS (12)
  - Death [Fatal]
  - Pneumonia [Unknown]
  - Decreased appetite [Unknown]
  - Pain in jaw [Recovered/Resolved]
  - Headache [Recovered/Resolved]
  - Vomiting [Unknown]
  - Diarrhoea [Recovered/Resolved]
  - Abdominal discomfort [Unknown]
  - Weight decreased [Unknown]
  - Fatigue [Unknown]
  - Transfusion [Unknown]
  - Weight increased [Unknown]

NARRATIVE: CASE EVENT DATE: 20220825
